FAERS Safety Report 19085278 (Version 2)
Quarter: 2021Q2

REPORT INFORMATION
  Report Type: Spontaneous
  Country: US (occurrence: US)
  Receive Date: 20210401
  Receipt Date: 20210408
  Transmission Date: 20210717
  Serious: Yes (Other)
  Sender: FDA-Public Use
  Company Number: US-VERTEX PHARMACEUTICALS-2021-005225

PATIENT
  Sex: Female

DRUGS (1)
  1. TRIKAFTA [Suspect]
     Active Substance: ELEXACAFTOR\IVACAFTOR\TEZACAFTOR
     Indication: CYSTIC FIBROSIS
     Dosage: UNK
     Route: 048

REACTIONS (15)
  - Procedural headache [Unknown]
  - Gestational diabetes [Unknown]
  - Neck pain [Unknown]
  - Premature delivery [Unknown]
  - Hypoglycaemia [Unknown]
  - Depression [Unknown]
  - Exposure during pregnancy [Unknown]
  - Cholestasis of pregnancy [Unknown]
  - Amniotic cavity infection [Unknown]
  - Nephrolithiasis [Unknown]
  - Premature labour [Unknown]
  - Cholecystitis [Unknown]
  - Malnutrition [Unknown]
  - Perinatal depression [Unknown]
  - Wound infection [Unknown]
